FAERS Safety Report 17049135 (Version 1)
Quarter: 2019Q4

REPORT INFORMATION
  Report Type: Spontaneous
  Country: CZ (occurrence: CZ)
  Receive Date: 20191119
  Receipt Date: 20191119
  Transmission Date: 20200122
  Serious: Yes (Other)
  Sender: FDA-Public Use
  Company Number: NVSC2019CZ038692

PATIENT
  Age: 59 Year
  Sex: Male

DRUGS (4)
  1. TAFINLAR [Suspect]
     Active Substance: DABRAFENIB MESYLATE
     Dosage: 225 MG, QD
     Route: 065
  2. MEKINIST [Suspect]
     Active Substance: TRAMETINIB DIMETHYL SULFOXIDE
     Indication: PRODUCT USED FOR UNKNOWN INDICATION
     Dosage: 2 MG, QD (1-0-0)
     Route: 065
  3. TAFINLAR [Suspect]
     Active Substance: DABRAFENIB MESYLATE
     Dosage: 300 MG, QD
     Route: 065
     Dates: start: 201807
  4. TAFINLAR [Suspect]
     Active Substance: DABRAFENIB MESYLATE
     Indication: PRODUCT USED FOR UNKNOWN INDICATION
     Dosage: 75 MG, BID (2-0-2)
     Route: 065

REACTIONS (3)
  - Lymphoedema [Not Recovered/Not Resolved]
  - Leukopenia [Recovered/Resolved]
  - Metastases to thorax [Unknown]
